FAERS Safety Report 9091631 (Version 1)
Quarter: 2013Q1

REPORT INFORMATION
  Report Type: Report from Study
  Country: US (occurrence: US)
  Receive Date: 20130201
  Receipt Date: 20130201
  Transmission Date: 20140127
  Serious: No
  Sender: FDA-Public Use
  Company Number: US-ABBOTT-12P-163-1020554-00

PATIENT
  Age: 80 Year
  Sex: Female

DRUGS (8)
  1. HUMIRA [Suspect]
     Indication: RHEUMATOID ARTHRITIS
     Dates: start: 20120809
  2. ASPIRIN [Concomitant]
     Indication: RHEUMATOID ARTHRITIS
  3. CALCIUM [Concomitant]
     Indication: MINERAL SUPPLEMENTATION
     Dosage: DAILY
  4. SULFASALAZINE [Concomitant]
     Indication: RHEUMATOID ARTHRITIS
     Dosage: 3 IN AM AND 2 AT NIGHT
  5. FOLIC ACID [Concomitant]
     Indication: VITAMIN SUPPLEMENTATION
  6. TRIAMTERENE [Concomitant]
     Indication: BLOOD PRESSURE
     Dosage: 37.5/25
  7. PRESSURE VISION VITAMIN [Concomitant]
     Indication: GLAUCOMA
  8. AREVA [Concomitant]
     Indication: RHEUMATOID ARTHRITIS

REACTIONS (1)
  - Injection site pain [Recovered/Resolved]
